FAERS Safety Report 13465607 (Version 2)
Quarter: 2017Q2

REPORT INFORMATION
  Report Type: Spontaneous
  Country: DE (occurrence: DE)
  Receive Date: 20170421
  Receipt Date: 20170518
  Transmission Date: 20170830
  Serious: Yes (Hospitalization, Other)
  Sender: FDA-Public Use
  Company Number: DE-ROCHE-1923119

PATIENT
  Age: 70 Year
  Sex: Female
  Weight: 70 kg

DRUGS (2)
  1. XELODA [Suspect]
     Active Substance: CAPECITABINE
     Indication: RECTAL CANCER
     Route: 065
     Dates: start: 201612
  2. MARCUMAR [Concomitant]
     Active Substance: PHENPROCOUMON

REACTIONS (3)
  - Crohn^s disease [Unknown]
  - Diarrhoea [Recovered/Resolved]
  - Coagulopathy [Not Recovered/Not Resolved]
